FAERS Safety Report 5458521-9 (Version None)
Quarter: 2007Q3

REPORT INFORMATION
  Report Type: 
  Country: None (occurrence: None)
  Receive Date: 20070919
  Receipt Date: 20070907
  Transmission Date: 20080115
  Serious: Yes (Other)
  Sender: FDA-Public Use
  Company Number: HQWYE966310MAR03

PATIENT
  Sex: Female

DRUGS (3)
  1. PREMPRO [Suspect]
     Indication: MENOPAUSE
     Dosage: UNSPECIFIED
     Route: 048
     Dates: start: 19980301, end: 20000101
  2. MEDROXYPROGESTERONE ACETATE [Suspect]
     Dosage: UNSPECIFIED
     Route: 048
     Dates: start: 19900101, end: 19980101
  3. CONJUGATED ESTROGENS [Suspect]
     Indication: MENOPAUSE
     Dosage: UNSPECIFIED
     Route: 048
     Dates: start: 19900101, end: 19980101

REACTIONS (1)
  - BREAST CANCER METASTATIC [None]
